FAERS Safety Report 25792429 (Version 1)
Quarter: 2025Q3

REPORT INFORMATION
  Report Type: Spontaneous
  Country: EU (occurrence: EU)
  Receive Date: 20250911
  Receipt Date: 20250911
  Transmission Date: 20251021
  Serious: Yes (Other)
  Sender: MYLAN
  Company Number: EU-BRISTOL-MYERS SQUIBB COMPANY-2025-119669

PATIENT
  Age: 71 Year
  Sex: Female

DRUGS (36)
  1. LENALIDOMIDE [Suspect]
     Active Substance: LENALIDOMIDE
     Indication: Follicular lymphoma
     Dates: start: 202103, end: 202106
  2. LENALIDOMIDE [Suspect]
     Active Substance: LENALIDOMIDE
     Dates: start: 202103, end: 202106
  3. LENALIDOMIDE [Suspect]
     Active Substance: LENALIDOMIDE
     Route: 065
     Dates: start: 202103, end: 202106
  4. LENALIDOMIDE [Suspect]
     Active Substance: LENALIDOMIDE
     Route: 065
     Dates: start: 202103, end: 202106
  5. LENALIDOMIDE [Suspect]
     Active Substance: LENALIDOMIDE
     Dates: start: 202201, end: 202205
  6. LENALIDOMIDE [Suspect]
     Active Substance: LENALIDOMIDE
     Dates: start: 202201, end: 202205
  7. LENALIDOMIDE [Suspect]
     Active Substance: LENALIDOMIDE
     Route: 065
     Dates: start: 202201, end: 202205
  8. LENALIDOMIDE [Suspect]
     Active Substance: LENALIDOMIDE
     Route: 065
     Dates: start: 202201, end: 202205
  9. LENALIDOMIDE [Suspect]
     Active Substance: LENALIDOMIDE
     Dates: start: 202207, end: 202208
  10. LENALIDOMIDE [Suspect]
     Active Substance: LENALIDOMIDE
     Route: 065
     Dates: start: 202207, end: 202208
  11. LENALIDOMIDE [Suspect]
     Active Substance: LENALIDOMIDE
     Dates: start: 202207, end: 202208
  12. LENALIDOMIDE [Suspect]
     Active Substance: LENALIDOMIDE
     Route: 065
     Dates: start: 202207, end: 202208
  13. RITUXIMAB [Suspect]
     Active Substance: RITUXIMAB
     Indication: Follicular lymphoma
     Dates: start: 201804, end: 201810
  14. RITUXIMAB [Suspect]
     Active Substance: RITUXIMAB
     Dates: start: 201804, end: 201810
  15. RITUXIMAB [Suspect]
     Active Substance: RITUXIMAB
     Route: 065
     Dates: start: 201804, end: 201810
  16. RITUXIMAB [Suspect]
     Active Substance: RITUXIMAB
     Route: 065
     Dates: start: 201804, end: 201810
  17. RITUXIMAB [Suspect]
     Active Substance: RITUXIMAB
     Route: 065
     Dates: start: 201810, end: 201909
  18. RITUXIMAB [Suspect]
     Active Substance: RITUXIMAB
     Route: 065
     Dates: start: 201810, end: 201909
  19. RITUXIMAB [Suspect]
     Active Substance: RITUXIMAB
     Dates: start: 201810, end: 201909
  20. RITUXIMAB [Suspect]
     Active Substance: RITUXIMAB
     Dates: start: 201810, end: 201909
  21. RITUXIMAB [Suspect]
     Active Substance: RITUXIMAB
     Route: 065
     Dates: start: 202011, end: 202012
  22. RITUXIMAB [Suspect]
     Active Substance: RITUXIMAB
     Dates: start: 202011, end: 202012
  23. RITUXIMAB [Suspect]
     Active Substance: RITUXIMAB
     Dates: start: 202011, end: 202012
  24. RITUXIMAB [Suspect]
     Active Substance: RITUXIMAB
     Route: 065
     Dates: start: 202011, end: 202012
  25. RITUXIMAB [Suspect]
     Active Substance: RITUXIMAB
     Route: 065
  26. RITUXIMAB [Suspect]
     Active Substance: RITUXIMAB
     Route: 065
  27. RITUXIMAB [Suspect]
     Active Substance: RITUXIMAB
  28. RITUXIMAB [Suspect]
     Active Substance: RITUXIMAB
  29. RITUXIMAB [Suspect]
     Active Substance: RITUXIMAB
     Route: 065
     Dates: start: 202103, end: 202106
  30. RITUXIMAB [Suspect]
     Active Substance: RITUXIMAB
     Dates: start: 202103, end: 202106
  31. RITUXIMAB [Suspect]
     Active Substance: RITUXIMAB
     Dates: start: 202103, end: 202106
  32. RITUXIMAB [Suspect]
     Active Substance: RITUXIMAB
     Route: 065
     Dates: start: 202103, end: 202106
  33. RITUXIMAB [Suspect]
     Active Substance: RITUXIMAB
     Dates: start: 202201, end: 202205
  34. RITUXIMAB [Suspect]
     Active Substance: RITUXIMAB
     Dates: start: 202201, end: 202205
  35. RITUXIMAB [Suspect]
     Active Substance: RITUXIMAB
     Route: 065
     Dates: start: 202201, end: 202205
  36. RITUXIMAB [Suspect]
     Active Substance: RITUXIMAB
     Route: 065
     Dates: start: 202201, end: 202205

REACTIONS (4)
  - Malignant neoplasm progression [Unknown]
  - Pancytopenia [Unknown]
  - Trigeminal neuralgia [Unknown]
  - Pyrexia [Unknown]

NARRATIVE: CASE EVENT DATE: 20210701
